FAERS Safety Report 8199297-4 (Version None)
Quarter: 2012Q1

REPORT INFORMATION
  Report Type: 
  Country: None (occurrence: None)
  Receive Date: 20120309
  Receipt Date: 20120228
  Transmission Date: 20120608
  Serious: Yes (Other)
  Sender: FDA-Public Use
  Company Number: JP-AMGEN-JPNCT2011018385

PATIENT
  Age: 65 Year
  Sex: Female
  Weight: 38 kg

DRUGS (16)
  1. FLUOROURACIL [Suspect]
     Indication: COLORECTAL CANCER
     Route: 040
     Dates: start: 20101029, end: 20110304
  2. FLUOROURACIL [Suspect]
     Route: 040
     Dates: start: 20110527, end: 20110715
  3. FLUOROURACIL [Suspect]
     Route: 041
     Dates: start: 20110527, end: 20110715
  4. CORTICOSTEROIDS [Concomitant]
     Indication: PROPHYLAXIS
     Dosage: UNK
     Route: 065
  5. DECADRON [Concomitant]
     Route: 042
     Dates: start: 20101029, end: 20110304
  6. PANITUMUMAB [Suspect]
     Dosage: 6 MG/KG, Q2WK
     Route: 041
     Dates: start: 20110107, end: 20110304
  7. LEVOLEUCOVORIN CALCIUM [Concomitant]
     Indication: COLORECTAL CANCER
     Route: 041
     Dates: start: 20101029, end: 20110304
  8. DECADRON [Concomitant]
     Indication: PROPHYLAXIS
     Route: 048
     Dates: start: 20101030, end: 20110308
  9. IRINOTECAN HCL [Suspect]
     Route: 041
     Dates: start: 20110527, end: 20110715
  10. FLUOROURACIL [Suspect]
     Route: 041
     Dates: start: 20101029, end: 20110304
  11. LEVOLEUCOVORIN CALCIUM [Concomitant]
     Route: 041
     Dates: start: 20110527, end: 20110715
  12. PANITUMUMAB [Suspect]
     Indication: COLORECTAL CANCER
     Dosage: 6 MG/KG, Q2WK
     Route: 041
     Dates: start: 20101029, end: 20101126
  13. BASEN [Concomitant]
     Indication: DIABETES MELLITUS
     Route: 048
     Dates: start: 20100731
  14. ALOXI [Concomitant]
     Indication: PROPHYLAXIS
     Route: 042
     Dates: start: 20101029, end: 20110304
  15. IRINOTECAN HCL [Suspect]
     Indication: COLORECTAL CANCER
     Route: 041
     Dates: start: 20101029, end: 20110304
  16. EMEND [Concomitant]
     Indication: PROPHYLAXIS
     Route: 048
     Dates: start: 20101029, end: 20110307

REACTIONS (3)
  - DERMATITIS ACNEIFORM [None]
  - DECREASED APPETITE [None]
  - INTERSTITIAL LUNG DISEASE [None]
